FAERS Safety Report 13741255 (Version 1)
Quarter: 2017Q3

REPORT INFORMATION
  Report Type: Spontaneous
  Country: US (occurrence: US)
  Receive Date: 20170711
  Receipt Date: 20170711
  Transmission Date: 20171127
  Serious: Yes (Hospitalization)
  Sender: FDA-Public Use
  Company Number: None

PATIENT
  Age: 46 Year
  Sex: Male

DRUGS (4)
  1. DEXAMETHASONE. [Concomitant]
     Active Substance: DEXAMETHASONE
  2. OXYCODONE [Concomitant]
     Active Substance: OXYCODONE
  3. MVI [Concomitant]
     Active Substance: VITAMINS
  4. OCTREOTIDE. [Suspect]
     Active Substance: OCTREOTIDE
     Indication: COLON CANCER
     Dosage: ?          OTHER DOSE:UGM;?
     Route: 058
     Dates: start: 20170203

REACTIONS (2)
  - Blood sodium decreased [None]
  - Swelling [None]

NARRATIVE: CASE EVENT DATE: 20170608
